FAERS Safety Report 21899075 (Version 1)
Quarter: 2023Q1

REPORT INFORMATION
  Report Type: Spontaneous
  Country: PL (occurrence: PL)
  Receive Date: 20230123
  Receipt Date: 20230123
  Transmission Date: 20230418
  Serious: Yes (Hospitalization, Congenital Anomaly, Other)
  Sender: FDA-Public Use
  Company Number: PL-GLAXOSMITHKLINE-PL2022GSK181508

PATIENT
  Sex: Male

DRUGS (12)
  1. FENTANYL [Suspect]
     Active Substance: FENTANYL
     Indication: Anaesthesia
     Dosage: UNK
     Route: 064
  2. ROCURONIUM [Suspect]
     Active Substance: ROCURONIUM BROMIDE
     Indication: Anaesthesia
     Dosage: UNK
     Route: 064
  3. MAGNESIUM [Suspect]
     Active Substance: MAGNESIUM
     Indication: Product used for unknown indication
     Dosage: UNK
     Route: 064
  4. LABETALOL [Suspect]
     Active Substance: LABETALOL\LABETALOL HYDROCHLORIDE
     Indication: Product used for unknown indication
     Dosage: 200 MG IN 50 ML
     Route: 064
  5. OXYGEN [Suspect]
     Active Substance: OXYGEN
     Indication: Product used for unknown indication
     Dosage: N2O:OXYGEN-2:1, FLOW
     Route: 064
  6. OXYGEN [Suspect]
     Active Substance: OXYGEN
     Dosage: N2O:OXYGEN-2:1, FLOW
     Route: 064
  7. SEVOFLURANE [Suspect]
     Active Substance: SEVOFLURANE
     Indication: Anaesthesia
     Dosage: 2 VOLUME%
     Route: 064
  8. BETAMETHASONE [Suspect]
     Active Substance: BETAMETHASONE
     Indication: Maternal therapy to enhance foetal lung maturity
     Dosage: UNK
     Route: 064
  9. MAGNESIUM SULFATE [Suspect]
     Active Substance: MAGNESIUM SULFATE
     Indication: Product used for unknown indication
     Dosage: 4-6 G IV
     Route: 064
  10. MAGNESIUM SULFATE [Suspect]
     Active Substance: MAGNESIUM SULFATE
     Dosage: 1-2 G/H
     Route: 064
  11. PROGESTERONE [Suspect]
     Active Substance: PROGESTERONE
     Indication: Product used for unknown indication
     Dosage: UNK
     Route: 064
  12. DIAZEPAM [Suspect]
     Active Substance: DIAZEPAM
     Indication: Seizure
     Dosage: 10 MG, UNK
     Route: 064

REACTIONS (5)
  - Neonatal respiratory distress syndrome [Recovered/Resolved]
  - Atrial septal defect [Recovered/Resolved]
  - Anaemia neonatal [Recovered/Resolved]
  - Premature baby [Unknown]
  - Foetal exposure during pregnancy [Unknown]
